FAERS Safety Report 8571084-4 (Version None)
Quarter: 2012Q3

REPORT INFORMATION
  Report Type: 
  Country: None (occurrence: None)
  Receive Date: 20120806
  Receipt Date: 20120803
  Transmission Date: 20120928
  Serious: No
  Sender: FDA-Public Use
  Company Number: US-PFIZER INC-2012189419

PATIENT
  Age: 47 Year
  Sex: Female
  Weight: 62.585 kg

DRUGS (3)
  1. CHANTIX [Suspect]
     Dosage: 1 MG, 2X/DAY
     Route: 048
     Dates: start: 20120101, end: 20120803
  2. CHANTIX [Suspect]
     Indication: SMOKING CESSATION THERAPY
     Dosage: 0.5 MG, 1X/DAY
     Route: 048
     Dates: start: 20120722, end: 20120101
  3. LEXAPRO [Concomitant]
     Indication: ANXIETY
     Dosage: 10 MG, UNK

REACTIONS (3)
  - FEELING JITTERY [None]
  - NERVOUSNESS [None]
  - INSOMNIA [None]
